FAERS Safety Report 5597880-3 (Version None)
Quarter: 2007Q4

REPORT INFORMATION
  Report Type: 
  Country: None (occurrence: None)
  Receive Date: 20071221
  Receipt Date: 20070502
  Transmission Date: 20080405
  Serious: Yes (Hospitalization)
  Sender: FDA-Public Use
  Company Number: US200705000533

PATIENT
  Age: 53 Year
  Sex: Female

DRUGS (4)
  1. HUMALOG [Suspect]
     Dosage: AS NEEDED, SUB. PUMP
     Dates: start: 20010101
  2. HUMALOG [Suspect]
     Dosage: AS NEEDED
     Dates: start: 20070429
  3. HUMALOG [Suspect]
     Dosage: 5 U, OTHER, SUB. PUMP ; 10 U, OTHER, SUB. PUMP
     Dates: start: 20070425, end: 20070425
  4. HUMALOG [Suspect]
     Dosage: 5 U, OTHER, SUB. PUMP ; 10 U, OTHER, SUB. PUMP
     Dates: start: 20070425, end: 20070425

REACTIONS (5)
  - ANAEMIA [None]
  - BLOOD GLUCOSE INCREASED [None]
  - DRUG INEFFECTIVE [None]
  - NASOPHARYNGITIS [None]
  - VISUAL ACUITY REDUCED [None]
